FAERS Safety Report 9879499 (Version 2)
Quarter: 2014Q1

REPORT INFORMATION
  Report Type: Spontaneous
  Country: US (occurrence: US)
  Receive Date: 20140206
  Receipt Date: 20140206
  Transmission Date: 20141002
  Serious: Yes (Other)
  Sender: FDA-Public Use
  Company Number: US-GILEAD-2013-0082333

PATIENT
  Age: 65 Year
  Sex: Male
  Weight: 81.81 kg

DRUGS (5)
  1. STRIBILD [Suspect]
     Indication: HIV INFECTION
     Dosage: 1 DF, QD
     Route: 048
     Dates: start: 20130506
  2. CRESTOR [Concomitant]
     Indication: HYPERLIPIDAEMIA
     Dosage: 5 MG, UNK
     Route: 048
     Dates: start: 20130506
  3. HYDRAZINE [Concomitant]
     Indication: ANXIETY
     Dosage: 25 MG, UNK
     Route: 048
  4. CELEXA                             /00582602/ [Concomitant]
     Indication: DEPRESSION
     Dosage: 20 MG, UNK
     Route: 048
  5. CLONAZEPAM [Concomitant]
     Indication: ANXIETY
     Dosage: 0.5 MG, UNK
     Route: 048

REACTIONS (2)
  - Drug ineffective [Unknown]
  - Viral load increased [Unknown]
